FAERS Safety Report 8477293-7 (Version None)
Quarter: 2012Q2

REPORT INFORMATION
  Report Type: 
  Country: None (occurrence: None)
  Receive Date: 20120622
  Receipt Date: 20120612
  Transmission Date: 20120825
  Serious: Yes (Other)
  Sender: FDA-Public Use
  Company Number: 2012SP012019

PATIENT
  Sex: Female

DRUGS (3)
  1. RIBAVIRIN [Suspect]
     Indication: HEPATITIS C
     Dates: start: 20120102
  2. PEGASYS [Suspect]
     Indication: HEPATITIS C
     Dates: start: 20120102
  3. VICTRELIS [Suspect]
     Indication: HEPATITIS C
     Dates: start: 20120205

REACTIONS (13)
  - BLOOD BILIRUBIN INCREASED [None]
  - DIARRHOEA [None]
  - DYSGEUSIA [None]
  - HAEMOGLOBIN DECREASED [None]
  - GLOSSODYNIA [None]
  - ORAL DISCOMFORT [None]
  - ORAL PAIN [None]
  - PLATELET COUNT DECREASED [None]
  - WHITE BLOOD CELL COUNT DECREASED [None]
  - PAIN [None]
  - BLOOD URIC ACID INCREASED [None]
  - HYPOAESTHESIA ORAL [None]
  - ERYTHEMA [None]
